FAERS Safety Report 8127184-6 (Version None)
Quarter: 2012Q1

REPORT INFORMATION
  Report Type: 
  Country: None (occurrence: None)
  Receive Date: 20120210
  Receipt Date: 20120206
  Transmission Date: 20120608
  Serious: Yes (Other)
  Sender: FDA-Public Use
  Company Number: US-PFIZER INC-2012032910

PATIENT
  Sex: Female
  Weight: 70.748 kg

DRUGS (6)
  1. ACETYLSALICYLIC ACID SRT [Suspect]
     Dosage: 81 MG, DAILY
  2. LYRICA [Suspect]
     Indication: NEUROPATHY PERIPHERAL
     Dosage: 25 MG, 2X/DAY
  3. ACETYLSALICYLIC ACID SRT [Suspect]
     Indication: CARDIAC DISORDER
     Dosage: UNK, DAILY
  4. LYRICA [Suspect]
     Dosage: 25 MG, 3X/DAY
  5. LYRICA [Suspect]
     Dosage: 50MG, UNK
  6. NEXIUM [Suspect]
     Indication: GASTROOESOPHAGEAL REFLUX DISEASE
     Dosage: UNK, DAILY

REACTIONS (8)
  - DRUG INEFFECTIVE [None]
  - SLEEP DISORDER [None]
  - DISORIENTATION [None]
  - GASTROOESOPHAGEAL REFLUX DISEASE [None]
  - FALL [None]
  - DIZZINESS [None]
  - ABDOMINAL DISCOMFORT [None]
  - SOMNOLENCE [None]
